FAERS Safety Report 8769533 (Version 1)
Quarter: 2012Q4

REPORT INFORMATION
  Report Type: 
  Country: US (occurrence: US)
  Receive Date: 20120905
  Receipt Date: 20120905
  Transmission Date: 20130627
  Serious: No
  Sender: FDA-Public Use
  Company Number: US-PFIZER INC-2012215335

PATIENT
  Sex: Female
  Weight: 36.3 kg

DRUGS (4)
  1. CHILDREN^S ADVIL [Suspect]
     Indication: NASAL CONGESTION
     Dosage: two teaspoons of an unknown dose (single dose)
     Route: 048
     Dates: start: 20120901
  2. CHILDREN^S ADVIL [Suspect]
     Indication: INFLUENZA LIKE ILLNESS
  3. CHILDREN^S ADVIL [Suspect]
     Indication: OROPHARYNGEAL PAIN
  4. CHILDREN^S ADVIL [Suspect]
     Indication: HEADACHE

REACTIONS (1)
  - Lip swelling [Not Recovered/Not Resolved]
